FAERS Safety Report 4675905-7 (Version None)
Quarter: 2005Q2

REPORT INFORMATION
  Report Type: 
  Country: None (occurrence: None)
  Receive Date: 20050527
  Receipt Date: 20050518
  Transmission Date: 20051028
  Serious: Yes (Other)
  Sender: FDA-Public Use
  Company Number: US-JNJFOC-20050301921

PATIENT
  Sex: Female
  Weight: 78.93 kg

DRUGS (7)
  1. REMICADE [Suspect]
     Dosage: RESTARTED THERAPY ON AN UNSPECIFIED DATE
     Route: 042
  2. REMICADE [Suspect]
     Indication: CROHN'S DISEASE
     Route: 042
  3. SYNTHROID [Concomitant]
  4. PRILOSEC [Concomitant]
  5. IMURAN [Concomitant]
  6. ASACOL [Concomitant]
  7. DIFLUCAN [Concomitant]

REACTIONS (3)
  - EXTRAVASATION [None]
  - LUPUS-LIKE SYNDROME [None]
  - MYCOBACTERIUM CHELONEI INFECTION [None]
